FAERS Safety Report 12422598 (Version 1)
Quarter: 2016Q2

REPORT INFORMATION
  Report Type: Spontaneous
  Country: GB (occurrence: GB)
  Receive Date: 20160601
  Receipt Date: 20160601
  Transmission Date: 20160815
  Serious: Yes (Other)
  Sender: FDA-Public Use
  Company Number: GB-ACCORD-040944

PATIENT
  Age: 67 Year
  Sex: Male

DRUGS (4)
  1. SIMVASTATIN. [Concomitant]
     Active Substance: SIMVASTATIN
  2. ASPIRIN. [Concomitant]
     Active Substance: ASPIRIN
  3. FINASTERIDE. [Suspect]
     Active Substance: FINASTERIDE
     Indication: URINE FLOW DECREASED
     Route: 048
     Dates: start: 20160217, end: 20160427
  4. BISOPROLOL [Concomitant]
     Active Substance: BISOPROLOL

REACTIONS (2)
  - Gait disturbance [Recovered/Resolved with Sequelae]
  - Pain in extremity [Recovered/Resolved with Sequelae]
